FAERS Safety Report 11263636 (Version 1)
Quarter: 2015Q3

REPORT INFORMATION
  Report Type: Spontaneous
  Country: US (occurrence: None)
  Receive Date: 20150710
  Receipt Date: 20150710
  Transmission Date: 20151125
  Serious: Yes (Death)
  Sender: FDA-Public Use
  Company Number: None

PATIENT
  Age: 49 Year
  Sex: Male

DRUGS (1)
  1. STIVARGA [Suspect]
     Active Substance: REGORAFENIB
     Indication: COLON CANCER
     Dosage: DAILY FOR 21 DAYS 7 DAYS
     Route: 048
     Dates: start: 20150128, end: 20150620

REACTIONS (1)
  - Death [None]

NARRATIVE: CASE EVENT DATE: 201506
